FAERS Safety Report 9408290 (Version 1)
Quarter: 2013Q3

REPORT INFORMATION
  Report Type: Report from Study
  Country: JP (occurrence: JP)
  Receive Date: 20130718
  Receipt Date: 20130718
  Transmission Date: 20140515
  Serious: Yes (Death, Hospitalization, Other)
  Sender: FDA-Public Use
  Company Number: PHHY2013JP076294

PATIENT
  Age: 61 Year
  Sex: Female
  Weight: 40 kg

DRUGS (29)
  1. CUBICIN [Suspect]
     Indication: EXTRADURAL ABSCESS
     Dosage: 6.3 MG/KG, Q48H
     Route: 041
     Dates: start: 20130226, end: 20130429
  2. RIFAMPICIN [Suspect]
     Indication: EXTRADURAL ABSCESS
     Dosage: 450 MG, QD
     Route: 048
     Dates: start: 20130227, end: 20130417
  3. BAKTAR [Suspect]
     Indication: EXTRADURAL ABSCESS
     Dosage: 4 G, QD
     Route: 048
     Dates: start: 20130227, end: 20130417
  4. BAKTAR [Suspect]
     Dosage: 2 G, QD
     Route: 048
     Dates: start: 20130418, end: 20130501
  5. PREDNISOLONE [Concomitant]
     Indication: RHEUMATOID ARTHRITIS
     Dosage: 2.5 MG, QD
     Route: 048
     Dates: start: 20130301, end: 20130314
  6. PREDNISOLONE [Concomitant]
     Dosage: 1 MG, QD
     Route: 048
     Dates: start: 20130315, end: 20130322
  7. NORSPAN [Concomitant]
     Indication: SPONDYLITIS
     Dosage: 5 MG, QD
     Route: 061
     Dates: start: 20130228, end: 20130306
  8. NORSPAN [Concomitant]
     Dosage: 10 MG, QD
     Route: 061
     Dates: start: 20130307, end: 20130327
  9. NORSPAN [Concomitant]
     Dosage: 5 MG, QD
     Route: 061
     Dates: start: 20130328, end: 20130418
  10. TRAZENTA [Concomitant]
     Indication: DIABETES MELLITUS
     Dosage: 5 MG, QD
     Route: 048
     Dates: start: 20130226
  11. RIDAURA [Concomitant]
     Indication: RHEUMATOID ARTHRITIS
     Dosage: 3 MG, QD
     Route: 048
     Dates: start: 20130226, end: 20130312
  12. PURSENID [Concomitant]
     Indication: CONSTIPATION
     Dosage: 24 MG, QD
     Route: 048
     Dates: start: 20130226, end: 20130502
  13. ROZEREM [Concomitant]
     Indication: INSOMNIA
     Dosage: 8 MG, QD
     Route: 048
     Dates: start: 20130224, end: 20130512
  14. TETRAMIDE [Concomitant]
     Indication: MENTAL DISORDER
     Dosage: 30 MG, QD
     Route: 048
     Dates: start: 20130224, end: 20130512
  15. RISPERDAL [Concomitant]
     Indication: MENTAL DISORDER
     Dosage: 0.5 MG, QD
     Route: 048
     Dates: start: 20130224, end: 20130512
  16. SILECE [Concomitant]
     Indication: INSOMNIA
     Dosage: 2 MG, QD
     Route: 048
     Dates: start: 20130314, end: 20130512
  17. MEILAX [Concomitant]
     Indication: ANXIETY DISORDER
     Dosage: 1 MG, QD
     Route: 048
     Dates: start: 20130314, end: 20130512
  18. REFLEX                             /00738201/ [Concomitant]
     Indication: ANXIETY DISORDER
     Dosage: 15 MG, QD
     Route: 048
     Dates: start: 20130228
  19. REFLEX                             /00738201/ [Concomitant]
     Dosage: 15 MG, QD
     Route: 048
     Dates: start: 20130314, end: 20130512
  20. L CARTIN [Concomitant]
     Indication: MUSCLE ATROPHY
     Dosage: 600 MG, QD
     Route: 048
     Dates: start: 20130305, end: 20130311
  21. L CARTIN [Concomitant]
     Dosage: 1.2 G, QD
     Route: 048
     Dates: start: 20130312, end: 20130421
  22. TRAMCET [Concomitant]
     Indication: SPINAL OSTEOARTHRITIS
     Dosage: 1 DF, QD
     Route: 048
     Dates: start: 20130305, end: 20130311
  23. TRAMCET [Concomitant]
     Dosage: 2 DF, QD
     Route: 048
     Dates: start: 20130312, end: 20130324
  24. NOVAMIN [Concomitant]
     Indication: NAUSEA
     Dosage: 5 MG, QD
     Route: 048
     Dates: start: 20130307, end: 20130313
  25. THYRADIN S [Concomitant]
     Indication: HYPOTHYROIDISM
     Dosage: 50 UG, QD
     Route: 048
     Dates: start: 20130405, end: 20130512
  26. LYRICA [Concomitant]
     Indication: SPINAL OSTEOARTHRITIS
     Dosage: 75 MG, QD
     Route: 048
     Dates: start: 20130413, end: 20130512
  27. NEUROTROPIN [Concomitant]
     Indication: SPINAL OSTEOARTHRITIS
     Dates: start: 20130414, end: 20130512
  28. NEXIUM 1-2-3 [Concomitant]
     Indication: PROPHYLAXIS AGAINST GASTROINTESTINAL ULCER
     Dosage: 20 MG, QD
     Route: 048
     Dates: start: 20130414, end: 20130512
  29. CALONAL [Concomitant]
     Indication: SPINAL OSTEOARTHRITIS
     Dosage: 200 MG, QD
     Route: 048
     Dates: start: 20130414, end: 20130420

REACTIONS (4)
  - Acute respiratory failure [Fatal]
  - Opportunistic infection [Fatal]
  - White blood cell count decreased [Recovered/Resolved]
  - Overdose [Unknown]
